FAERS Safety Report 16777470 (Version 1)
Quarter: 2019Q3

REPORT INFORMATION
  Report Type: Spontaneous
  Country: US (occurrence: US)
  Receive Date: 20190905
  Receipt Date: 20190905
  Transmission Date: 20191005
  Serious: No
  Sender: FDA-Public Use
  Company Number: US-BAUSCH-BL-2019-024590

PATIENT
  Sex: Female

DRUGS (2)
  1. ALTRENO [Suspect]
     Active Substance: TRETINOIN
     Indication: PRODUCT USE IN UNAPPROVED INDICATION
  2. ALTRENO [Suspect]
     Active Substance: TRETINOIN
     Indication: SKIN WRINKLING
     Route: 061

REACTIONS (3)
  - Eye irritation [Not Recovered/Not Resolved]
  - Accidental exposure to product [Unknown]
  - Product use in unapproved indication [Unknown]
